FAERS Safety Report 14820951 (Version 1)
Quarter: 2018Q2

REPORT INFORMATION
  Report Type: Spontaneous
  Country: US (occurrence: US)
  Receive Date: 20180427
  Receipt Date: 20180427
  Transmission Date: 20180711
  Serious: Yes (Other)
  Sender: FDA-Public Use
  Company Number: US-SUPERNUS PHARMACEUTICALS, INC.-2018SUP00126

PATIENT
  Sex: Female
  Weight: 67.57 kg

DRUGS (5)
  1. SEVERAL DIFFERENT MEDICATIONS (UNSPECIFIED) [Concomitant]
  2. TYSABRI [Concomitant]
     Active Substance: NATALIZUMAB
     Dosage: UNK, EVERY 28 DAYS
  3. TROKENDI XR [Suspect]
     Active Substance: TOPIRAMATE
     Dosage: 50 MG, 1X/DAY
     Route: 048
     Dates: start: 201804
  4. TROKENDI XR [Suspect]
     Active Substance: TOPIRAMATE
     Indication: HEADACHE
     Dosage: 50 MG, 1X/DAY
     Route: 048
     Dates: end: 2018
  5. TROKENDI XR [Suspect]
     Active Substance: TOPIRAMATE
     Dosage: 100 MG, 1X/DAY
     Route: 048
     Dates: start: 2018, end: 201804

REACTIONS (2)
  - Drug ineffective for unapproved indication [Not Recovered/Not Resolved]
  - JC virus infection [Unknown]

NARRATIVE: CASE EVENT DATE: 2018
